FAERS Safety Report 6635765-1 (Version None)
Quarter: 2010Q1

REPORT INFORMATION
  Report Type: 
  Country: None (occurrence: None)
  Receive Date: 20100316
  Receipt Date: 20100312
  Transmission Date: 20100710
  Serious: Yes (Hospitalization, Other)
  Sender: FDA-Public Use
  Company Number: US-ASTRAZENECA-2007UW05908

PATIENT
  Age: 16166 Day
  Sex: Female
  Weight: 175.1 kg

DRUGS (16)
  1. SEROQUEL [Suspect]
     Indication: BIPOLAR DISORDER
     Dosage: 25 MG TO 300 MG
     Route: 048
     Dates: start: 20030901, end: 20080501
  2. SEROQUEL [Suspect]
     Route: 048
     Dates: start: 20091112
  3. DIDREX [Concomitant]
  4. GEODON [Concomitant]
     Dates: start: 20051201, end: 20060501
  5. RISPERDAL [Concomitant]
     Dates: start: 20030801, end: 20040101
  6. ZYPREXA [Concomitant]
     Dosage: 5 MG TO 20 MG
     Dates: start: 20020301, end: 20050401
  7. CLONAZEPAM [Concomitant]
     Dates: start: 20070901
  8. VALIUM [Concomitant]
     Dates: start: 20070901
  9. XANAX [Concomitant]
     Indication: PANIC DISORDER
     Dates: start: 20070101
  10. XANAX [Concomitant]
     Indication: ANXIETY
     Dates: start: 20070101
  11. ROZEREM [Concomitant]
     Indication: INSOMNIA
     Dates: start: 20070101
  12. DEPAKOTE [Concomitant]
     Route: 048
     Dates: start: 20091112
  13. SOMA [Concomitant]
     Indication: MUSCLE SPASMS
     Route: 048
     Dates: start: 20091112
  14. SOMA [Concomitant]
  15. AMBIEN [Concomitant]
     Route: 048
     Dates: start: 20091112
  16. WELLBUTRIN [Concomitant]
     Route: 048
     Dates: start: 20091112

REACTIONS (15)
  - ALANINE AMINOTRANSFERASE INCREASED [None]
  - ASTHENIA [None]
  - CAROTID ARTERY DISEASE [None]
  - DIABETES MELLITUS [None]
  - DIABETIC COMA [None]
  - DIABETIC NEUROPATHY [None]
  - DIZZINESS [None]
  - DYSARTHRIA [None]
  - LOSS OF CONSCIOUSNESS [None]
  - MENTAL STATUS CHANGES [None]
  - NEUROPATHY PERIPHERAL [None]
  - OBESITY [None]
  - PRESYNCOPE [None]
  - TRANSIENT ISCHAEMIC ATTACK [None]
  - TYPE 1 DIABETES MELLITUS [None]
